FAERS Safety Report 5217026-0 (Version None)
Quarter: 2007Q1

REPORT INFORMATION
  Report Type: 
  Country: None (occurrence: None)
  Receive Date: 20070119
  Receipt Date: 20070115
  Transmission Date: 20070707
  Serious: Yes (Hospitalization)
  Sender: FDA-Public Use
  Company Number: URSO-2006-057

PATIENT
  Age: 56 Year
  Sex: Male

DRUGS (6)
  1. URSO 250 [Suspect]
     Indication: HEPATIC FUNCTION ABNORMAL
     Dosage: 600MG QD PO
     Route: 048
     Dates: end: 20061226
  2. MERCAZOLE(THIAMAZOLE) [Concomitant]
  3. LAC-B (BIFIDOBACTERIUM 4) [Concomitant]
  4. LASIX [Concomitant]
  5. LIVACT (ISOLEUCINE/LEUCINE/VALINE) [Concomitant]
  6. CARVEDILOL [Concomitant]

REACTIONS (4)
  - BLOOD IMMUNOGLOBULIN E INCREASED [None]
  - EOSINOPHIL COUNT INCREASED [None]
  - PLEURAL EFFUSION [None]
  - PYREXIA [None]
